FAERS Safety Report 23749933 (Version 1)
Quarter: 2024Q2

REPORT INFORMATION
  Report Type: Spontaneous
  Country: US (occurrence: US)
  Receive Date: 20240417
  Receipt Date: 20240417
  Transmission Date: 20240716
  Serious: Yes (Other)
  Sender: FDA-Public Use
  Company Number: US-CHEPLA-2024004490

PATIENT
  Age: 45 Year
  Sex: Female
  Weight: 136 kg

DRUGS (7)
  1. OLANZAPINE [Suspect]
     Active Substance: OLANZAPINE
     Indication: Mood altered
  2. OLANZAPINE [Suspect]
     Active Substance: OLANZAPINE
     Indication: Mood altered
  3. MELATONIN [Suspect]
     Active Substance: MELATONIN
     Indication: Mood altered
  4. TOPIRAMATE [Suspect]
     Active Substance: TOPIRAMATE
     Indication: Mood altered
  5. METFORMIN [Suspect]
     Active Substance: METFORMIN HYDROCHLORIDE
     Indication: Mood altered
  6. NALTREXONE [Suspect]
     Active Substance: NALTREXONE
     Indication: Mood altered
  7. SEMAGLUTIDE [Suspect]
     Active Substance: SEMAGLUTIDE
     Indication: Mood altered

REACTIONS (4)
  - Impaired gastric emptying [Unknown]
  - Suicidal ideation [Unknown]
  - Weight increased [Recovered/Resolved]
  - Nausea [Unknown]
